FAERS Safety Report 5843232-8 (Version None)
Quarter: 2008Q3

REPORT INFORMATION
  Report Type: 
  Country: None (occurrence: None)
  Receive Date: 20080813
  Receipt Date: 20080806
  Transmission Date: 20090109
  Serious: Yes (Death, Disabling, Other)
  Sender: FDA-Public Use
  Company Number: PHHY2008BR12255

PATIENT
  Sex: Female
  Weight: 51.8 kg

DRUGS (48)
  1. SANDIMMUNE [Suspect]
     Indication: PROPHYLAXIS AGAINST GRAFT VERSUS HOST DISEASE
     Dosage: 75 MG, Q12H
     Route: 042
     Dates: start: 20080603, end: 20080605
  2. SANDIMMUNE [Suspect]
     Dosage: 150 MG PER DAY
     Dates: start: 20080606, end: 20080619
  3. SANDIMMUNE [Suspect]
     Dosage: 150 MG PER DAY
     Dates: start: 20080620
  4. BACTRIM [Concomitant]
     Dosage: UNK
     Dates: start: 20080529
  5. URSACOL [Concomitant]
     Dosage: 300 MG PER DAY
     Dates: start: 20080529
  6. ZOLBEN [Concomitant]
     Dosage: 2 DF PER DAY
     Route: 048
     Dates: start: 20080529
  7. DIPYRONE [Concomitant]
     Dosage: 2 ML PER DAY
     Dates: start: 20080529
  8. CEFEPIME [Concomitant]
     Dosage: 2 G PER DAY
     Dates: start: 20080529
  9. FLUDARABINE [Concomitant]
     Dosage: 47 MG PER DAY
     Dates: start: 20080530
  10. LASIX [Concomitant]
     Dosage: 10 MG PER DAY
     Dates: start: 20080530
  11. FLUCONAZOLE [Concomitant]
  12. CYCLOPHOSPHAMIDE [Concomitant]
     Dosage: 1560 MG PER DAY
     Dates: start: 20080530
  13. MESNA [Concomitant]
     Dosage: UNK
     Dates: start: 20080530
  14. ACYCLOVIR [Concomitant]
  15. ONDANSETRON [Concomitant]
  16. GRANULOKINE [Concomitant]
     Dosage: 300 MG PER DAY
     Dates: start: 20080608
  17. URSODIOL [Concomitant]
  18. OMEPRAZOLE [Concomitant]
  19. LEUCOVORIN CALCIUM [Concomitant]
     Dosage: 20 MG PER DAY
  20. ZOLTEC [Concomitant]
     Dosage: 200 MG PER DAY
  21. LUFTAL [Concomitant]
     Dosage: 40 DROPS PER DAY
  22. TRAMAL [Concomitant]
     Dosage: 50 MG PER DAY
     Dates: start: 20080608
  23. MEROPENEM [Concomitant]
     Dosage: 1 G PER DAY
     Dates: start: 20080608
  24. DIGESAN [Concomitant]
     Dosage: 10 MG PER DAY
     Dates: start: 20080608
  25. HYDROCORTISONE [Concomitant]
     Dosage: 100 MG PER DAY
     Dates: start: 20080609
  26. MORPHINE [Concomitant]
     Dosage: UNK
     Dates: start: 20080609
  27. ZOFRAN [Concomitant]
     Dosage: 8 MG PER DAY
     Dates: start: 20080610
  28. FENERGAN [Concomitant]
     Dosage: 6.25 MG PER DAY
  29. DEXAMETHASONE 0.5MG TAB [Concomitant]
     Dosage: UNK
     Dates: start: 20080610
  30. VANCOMYCIN HCL [Concomitant]
     Dosage: 600 MG PER DAY
     Dates: start: 20080610
  31. NORADRENALIN [Concomitant]
  32. NIMESULIDE [Concomitant]
  33. ZYLORIC [Concomitant]
     Dosage: 300 MG PER DAY
  34. ALCALONE PLUS [Concomitant]
     Dosage: 30 ML PER DAY
     Dates: start: 20080530
  35. SOLU-MEDROL [Concomitant]
     Dosage: 100 MG PER DAY
     Dates: start: 20080531
  36. ZOVIRAX [Concomitant]
     Dosage: 785 MG PER DAY
     Dates: start: 20080603
  37. MANNITOL [Concomitant]
     Dosage: 100 ML PER DAY
     Dates: start: 20080603
  38. HYOSCINE [Concomitant]
     Dosage: 10 MG PER DAY
     Dates: start: 20080604
  39. ANTI-THYMOCYTE GLOBULIN NOS [Concomitant]
     Dosage: 100 MG PER DAY
     Dates: start: 20080531
  40. CSA [Concomitant]
     Dosage: 150 MG PER DAY
     Dates: start: 20080605
  41. TACROLIMUS [Concomitant]
     Dosage: 5 MG PER DAY
     Dates: start: 20080605
  42. RIVOTRIL [Concomitant]
     Dosage: 0.25 MG PER DAY
     Dates: start: 20080607
  43. DIAZEPAM [Concomitant]
     Dosage: UNK
     Dates: start: 20080607
  44. ALBUMIN (HUMAN) [Concomitant]
     Dosage: UNK
     Dates: start: 20080617
  45. CIPRO [Concomitant]
     Dosage: 400 MG PER DAY
     Dates: start: 20080617
  46. TIMOGLOBULINA [Concomitant]
     Dosage: UNK
     Dates: start: 20080619
  47. CISATRACURIUM [Concomitant]
     Dosage: 2 AMPOULES
     Dates: start: 20080619
  48. PLASIL [Concomitant]
     Dosage: UNK
     Dates: start: 20080627

REACTIONS (33)
  - ABDOMINAL PAIN [None]
  - BACK PAIN [None]
  - BRONCHOPULMONARY ASPERGILLOSIS [None]
  - BUTTERFLY RASH [None]
  - CARDIO-RESPIRATORY ARREST [None]
  - CHEST PAIN [None]
  - CONFUSIONAL STATE [None]
  - DIARRHOEA [None]
  - DYSPNOEA [None]
  - ENDOTRACHEAL INTUBATION [None]
  - FATIGUE [None]
  - HAEMODYNAMIC INSTABILITY [None]
  - HEPATIC FAILURE [None]
  - HYPOTENSION [None]
  - JAUNDICE [None]
  - LASER THERAPY [None]
  - LUNG DISORDER [None]
  - LUNG INFILTRATION [None]
  - MULTI-ORGAN FAILURE [None]
  - NASAL CONGESTION [None]
  - NECK PAIN [None]
  - ODYNOPHAGIA [None]
  - PLEURITIC PAIN [None]
  - PYREXIA [None]
  - RENAL FAILURE [None]
  - RESPIRATORY DISORDER [None]
  - RESPIRATORY FAILURE [None]
  - RESPIRATORY SYNCYTIAL VIRUS INFECTION [None]
  - SECRETION DISCHARGE [None]
  - SEPTIC SHOCK [None]
  - TACHYARRHYTHMIA [None]
  - VISUAL ACUITY REDUCED [None]
  - WEIGHT INCREASED [None]
